FAERS Safety Report 10203007 (Version 5)
Quarter: 2014Q3

REPORT INFORMATION
  Report Type: Spontaneous
  Country: JP (occurrence: JP)
  Receive Date: 20140528
  Receipt Date: 20140703
  Transmission Date: 20150326
  Serious: Yes (Death, Hospitalization)
  Sender: FDA-Public Use
  Company Number: JP-PFIZER INC-2014139641

PATIENT
  Age: 44 Year
  Sex: Male

DRUGS (1)
  1. SUTENT [Suspect]
     Active Substance: SUNITINIB MALATE
     Indication: PANCREATIC NEUROENDOCRINE TUMOUR
     Dosage: 37.5 MG, DAILY
     Route: 048
     Dates: start: 20140505, end: 20140519

REACTIONS (4)
  - Pancreatic neuroendocrine tumour [Fatal]
  - Febrile neutropenia [Recovered/Resolved]
  - Disease progression [Fatal]
  - Hepatitis fulminant [Fatal]

NARRATIVE: CASE EVENT DATE: 20140519
